FAERS Safety Report 20592460 (Version 3)
Quarter: 2022Q4

REPORT INFORMATION
  Report Type: Report from Study
  Country: JP (occurrence: JP)
  Receive Date: 20220314
  Receipt Date: 20221215
  Transmission Date: 20230112
  Serious: Yes (Death, Other)
  Sender: FDA-Public Use
  Company Number: JP-TAKEDA-2022TJP029105

PATIENT
  Age: 80 Year
  Sex: Male

DRUGS (6)
  1. LEUPROLIDE ACETATE [Suspect]
     Active Substance: LEUPROLIDE ACETATE
     Indication: Bulbospinal muscular atrophy congenital
     Dosage: 11.25 MILLIGRAM, Q3MONTHS
     Route: 058
     Dates: start: 20171016, end: 20210118
  2. LOXOPROFEN SODIUM [Concomitant]
     Active Substance: LOXOPROFEN SODIUM
     Indication: Arthralgia
     Dosage: 60 MILLIGRAM UNK
     Route: 065
     Dates: end: 20210118
  3. REBAMIPIDE [Concomitant]
     Active Substance: REBAMIPIDE
     Indication: Product used for unknown indication
     Dosage: 100 MILLIGRAM
     Route: 065
     Dates: end: 20210118
  4. METHYLCOBALAMIN [Concomitant]
     Active Substance: METHYLCOBALAMIN
     Indication: Product used for unknown indication
     Dosage: 1500 MICROGRAM
     Route: 065
     Dates: end: 20210118
  5. HERBALS [Concomitant]
     Active Substance: HERBALS
     Indication: Obesity
     Dosage: 7.5 GRAM
     Route: 065
     Dates: end: 20210118
  6. VESICARE [Concomitant]
     Active Substance: SOLIFENACIN SUCCINATE
     Indication: Hypertonic bladder
     Dosage: 2.5 MILLIGRAM
     Route: 065
     Dates: start: 20180723, end: 20181029

REACTIONS (1)
  - Death [Fatal]

NARRATIVE: CASE EVENT DATE: 20210322
